FAERS Safety Report 9740444 (Version 2)
Quarter: 2013Q4

REPORT INFORMATION
  Report Type: Spontaneous
  Country: IT (occurrence: IT)
  Receive Date: 20131209
  Receipt Date: 20131213
  Transmission Date: 20140711
  Serious: Yes (Life-Threatening, Hospitalization)
  Sender: FDA-Public Use
  Company Number: IT-ASTRAZENECA-2013SE89026

PATIENT
  Age: 14853 Day
  Sex: Male

DRUGS (1)
  1. SEROQUEL [Suspect]
     Dosage: 5 DF, TAKEN AS ONCE SINGLE ADMINISTRATION
     Route: 048
     Dates: start: 20131123, end: 20131123

REACTIONS (9)
  - Overdose [Recovered/Resolved]
  - Suicide attempt [Recovered/Resolved]
  - Drug abuse [Unknown]
  - Toxicity to various agents [Recovering/Resolving]
  - Agitation [Recovered/Resolved]
  - Confusional state [Recovered/Resolved]
  - Blood creatine phosphokinase increased [Recovering/Resolving]
  - Transaminases increased [Recovering/Resolving]
  - Somnolence [Unknown]
